FAERS Safety Report 24932172 (Version 1)
Quarter: 2025Q1

REPORT INFORMATION
  Report Type: Report from Study
  Country: US (occurrence: US)
  Receive Date: 20250205
  Receipt Date: 20250205
  Transmission Date: 20250409
  Serious: No
  Sender: EXELIXIS
  Company Number: US-EXELIXIS-CABO-24079820

PATIENT
  Age: 40 Year
  Sex: Male

DRUGS (3)
  1. CABOMETYX [Suspect]
     Active Substance: CABOZANTINIB S-MALATE
     Indication: Renal cancer
     Dosage: 40 MG, QD
     Route: 048
     Dates: start: 20240703
  2. CABOMETYX [Suspect]
     Active Substance: CABOZANTINIB S-MALATE
     Dosage: 40 MG, QD
     Route: 048
     Dates: start: 20240806, end: 20240816
  3. CABOMETYX [Suspect]
     Active Substance: CABOZANTINIB S-MALATE
     Dosage: 40 MG, QOD
     Route: 048

REACTIONS (20)
  - Hot flush [Recovering/Resolving]
  - Hair colour changes [Recovering/Resolving]
  - Oropharyngeal pain [Recovering/Resolving]
  - Hyperhidrosis [Unknown]
  - Hypoaesthesia oral [Unknown]
  - Tongue disorder [Recovering/Resolving]
  - Hypersomnia [Unknown]
  - Oral discomfort [Unknown]
  - Abdominal pain upper [Recovering/Resolving]
  - Dysphonia [Unknown]
  - Headache [Unknown]
  - Fatigue [Recovering/Resolving]
  - Dizziness [Unknown]
  - Gastrointestinal motility disorder [Unknown]
  - Decreased appetite [Recovering/Resolving]
  - Gastritis [Unknown]
  - Dry mouth [Unknown]
  - Weight decreased [Unknown]
  - Product prescribing issue [Unknown]
  - Inappropriate schedule of product administration [Unknown]

NARRATIVE: CASE EVENT DATE: 20240701
